FAERS Safety Report 4590299-3 (Version None)
Quarter: 2005Q1

REPORT INFORMATION
  Report Type: 
  Country: None (occurrence: None)
  Receive Date: 20050217
  Receipt Date: 20050204
  Transmission Date: 20050727
  Serious: Yes (Hospitalization)
  Sender: FDA-Public Use
  Company Number: 2005AP00864

PATIENT
  Age: 71 Year
  Sex: Male
  Weight: 90 kg

DRUGS (5)
  1. OMEPRAZOLE [Suspect]
     Dosage: 10 MG DAILY PO
     Route: 048
     Dates: start: 20020114
  2. RAMIPRIL [Suspect]
     Dosage: 5 MG DAILY PO
     Route: 048
     Dates: start: 20020114
  3. ASPIRIN [Suspect]
     Dosage: 1OO MG DAILY PO
     Route: 048
     Dates: start: 20020114
  4. ATORVASTATIN [Suspect]
     Dosage: 20 MG DAILY PO
     Route: 048
     Dates: start: 20020114
  5. FOLIC ACID [Suspect]
     Dosage: 5 MG DAILY PO
     Route: 048

REACTIONS (2)
  - GLOBAL AMNESIA [None]
  - MEMORY IMPAIRMENT [None]
